FAERS Safety Report 24533723 (Version 1)
Quarter: 2024Q4

REPORT INFORMATION
  Report Type: Spontaneous
  Country: FR (occurrence: FR)
  Receive Date: 20241022
  Receipt Date: 20241022
  Transmission Date: 20250115
  Serious: Yes (Hospitalization, Other)
  Sender: BRISTOL-MYERS SQUIBB COMPANY
  Company Number: None

PATIENT
  Age: 71 Year
  Sex: Female
  Weight: 65 kg

DRUGS (1)
  1. LENALIDOMIDE [Suspect]
     Active Substance: LENALIDOMIDE
     Indication: Myelodysplastic syndrome
     Dosage: 10 MG/D21D/28
     Route: 048
     Dates: start: 20240819, end: 20241001

REACTIONS (1)
  - Autoimmune haemolytic anaemia [Not Recovered/Not Resolved]

NARRATIVE: CASE EVENT DATE: 20241009
